FAERS Safety Report 18335158 (Version 1)
Quarter: 2020Q4

REPORT INFORMATION
  Report Type: Spontaneous
  Country: US (occurrence: US)
  Receive Date: 20201001
  Receipt Date: 20201001
  Transmission Date: 20210113
  Serious: No
  Sender: FDA-Public Use
  Company Number: US-ADAREPHARM-2020-US-000069

PATIENT
  Sex: Male

DRUGS (1)
  1. KCL [Suspect]
     Active Substance: POTASSIUM CHLORIDE
     Dosage: THE PATIENT HAS TAKEN 20 OF 30 PILLS SO FAR
     Route: 048

REACTIONS (2)
  - Product complaint [Not Recovered/Not Resolved]
  - Product use complaint [Not Recovered/Not Resolved]
